FAERS Safety Report 24835336 (Version 1)
Quarter: 2025Q1

REPORT INFORMATION
  Report Type: Spontaneous
  Country: US (occurrence: US)
  Receive Date: 20250113
  Receipt Date: 20250113
  Transmission Date: 20250409
  Serious: No
  Sender: UROGEN PHARMA
  Company Number: US-UROGEN PHARMA LTD.-2024-UGN-000176

PATIENT

DRUGS (2)
  1. JELMYTO [Suspect]
     Active Substance: MITOMYCIN
     Indication: Transitional cell cancer of the renal pelvis and ureter
     Dosage: 60 MILLIGRAM, ONCE A WEEK INSTILLATION (RETROGRADE)
     Dates: start: 20241106, end: 20241106
  2. JELMYTO [Suspect]
     Active Substance: MITOMYCIN
     Dosage: 60 MILLIGRAM, ONCE A WEEK INSTILLATION (RETROGRADE)
     Dates: start: 20241113, end: 20241113

REACTIONS (1)
  - Pyrexia [Unknown]

NARRATIVE: CASE EVENT DATE: 20241120
